FAERS Safety Report 18441131 (Version 4)
Quarter: 2021Q3

REPORT INFORMATION
  Report Type: Report from Study
  Country: US (occurrence: US)
  Receive Date: 20201029
  Receipt Date: 20210818
  Transmission Date: 20211014
  Serious: Yes (Life-Threatening)
  Sender: FDA-Public Use
  Company Number: US-TAKEDA-US202034588

PATIENT
  Age: 41 Year
  Sex: Female

DRUGS (13)
  1. C1 INHIBITOR (HUMAN) [Suspect]
     Active Substance: HUMAN C1-ESTERASE INHIBITOR
     Indication: HEREDITARY ANGIOEDEMA WITH NORMAL C1 ESTERASE INHIBITOR
     Dosage: , 3.1000 INTERNATIONAL UNIT, 3?4 DAYS
     Route: 042
     Dates: start: 202001
  2. FIRAZYR [Suspect]
     Active Substance: ICATIBANT ACETATE
     Indication: HEREDITARY ANGIOEDEMA WITH NORMAL C1 ESTERASE INHIBITOR
     Dosage: UNK MILLIGRAM, PRN
     Route: 058
     Dates: start: 201908
  3. C1 INHIBITOR (HUMAN) [Suspect]
     Active Substance: HUMAN C1-ESTERASE INHIBITOR
     Indication: HEREDITARY ANGIOEDEMA WITH NORMAL C1 ESTERASE INHIBITOR
     Dosage: , 3.1000 INTERNATIONAL UNIT, 3?4 DAYS
     Route: 042
     Dates: start: 202001
  4. C1 INHIBITOR (HUMAN) [Suspect]
     Active Substance: HUMAN C1-ESTERASE INHIBITOR
     Dosage: 1000 INTERNATIONAL UNIT, 3?4DAYS
     Route: 042
     Dates: start: 202010
  5. FIRAZYR [Suspect]
     Active Substance: ICATIBANT ACETATE
     Dosage: 30 MILLIGRAM
     Route: 058
     Dates: start: 2020
  6. LEVOCETRIZINE HYDROCHLORIDE [Concomitant]
  7. FIRAZYR [Suspect]
     Active Substance: ICATIBANT ACETATE
     Indication: HEREDITARY ANGIOEDEMA
     Dosage: 30 MILLIGRAM, PRN
     Route: 058
     Dates: start: 2019
  8. C1 INHIBITOR (HUMAN) [Suspect]
     Active Substance: HUMAN C1-ESTERASE INHIBITOR
     Indication: HEREDITARY ANGIOEDEMA WITH NORMAL C1 ESTERASE INHIBITOR
     Dosage: , 3.1000 INTERNATIONAL UNIT, 3?4 DAYS
     Route: 042
     Dates: start: 202001
  9. C1 INHIBITOR (HUMAN) [Suspect]
     Active Substance: HUMAN C1-ESTERASE INHIBITOR
     Dosage: 1000 INTERNATIONAL UNIT, 3?4DAYS
     Route: 042
     Dates: start: 202010
  10. C1 INHIBITOR (HUMAN) [Suspect]
     Active Substance: HUMAN C1-ESTERASE INHIBITOR
     Dosage: 1000 INTERNATIONAL UNIT, 3?4DAYS
     Route: 042
     Dates: start: 202010
  11. FIRAZYR [Suspect]
     Active Substance: ICATIBANT ACETATE
     Indication: HEREDITARY ANGIOEDEMA
     Dosage: 30 MILLIGRAM, PRN
     Route: 058
     Dates: start: 2019
  12. FIRAZYR [Suspect]
     Active Substance: ICATIBANT ACETATE
     Indication: HEREDITARY ANGIOEDEMA WITH NORMAL C1 ESTERASE INHIBITOR
     Dosage: UNK MILLIGRAM, PRN
     Route: 058
     Dates: start: 201908
  13. FIRAZYR [Suspect]
     Active Substance: ICATIBANT ACETATE
     Dosage: 30 MILLIGRAM
     Route: 058
     Dates: start: 2020

REACTIONS (8)
  - Alopecia [Unknown]
  - Condition aggravated [Unknown]
  - Infusion site bruising [Recovered/Resolved]
  - Injection site urticaria [Recovering/Resolving]
  - Pruritus [Recovering/Resolving]
  - Chest pain [Unknown]
  - Weight increased [Unknown]
  - Infusion related reaction [Recovering/Resolving]

NARRATIVE: CASE EVENT DATE: 20201019
